FAERS Safety Report 8401171-2 (Version None)
Quarter: 2012Q2

REPORT INFORMATION
  Report Type: 
  Country: None (occurrence: None)
  Receive Date: 20120601
  Receipt Date: 20120521
  Transmission Date: 20120825
  Serious: Yes (Death, Other)
  Sender: FDA-Public Use
  Company Number: US-RANBAXY-2012US-56699

PATIENT
  Sex: Female

DRUGS (2)
  1. ATORVASTATIN CALCIUM [Suspect]
     Indication: BLOOD CHOLESTEROL INCREASED
     Dosage: 20 MG DAILY
     Route: 065
     Dates: start: 20111201, end: 20111201
  2. BENICAR HCT [Concomitant]
     Indication: HYPERTENSION
     Dosage: UNK
     Route: 048

REACTIONS (6)
  - ABDOMINAL DISCOMFORT [None]
  - RESPIRATORY RATE DECREASED [None]
  - NAUSEA [None]
  - MALAISE [None]
  - LETHARGY [None]
  - BLOOD PRESSURE INCREASED [None]
